FAERS Safety Report 17736734 (Version 8)
Quarter: 2020Q4

REPORT INFORMATION
  Report Type: Report from Study
  Country: None (occurrence: ES)
  Receive Date: 20200501
  Receipt Date: 20201216
  Transmission Date: 20210113
  Serious: Yes (Other)
  Sender: FDA-Public Use
  Company Number: ES-ABBVIE-20K-144-3383233-00

PATIENT
  Age: 67 Year
  Sex: Female
  Weight: 53 kg

DRUGS (2)
  1. DUODOPA [Suspect]
     Active Substance: CARBIDOPA\LEVODOPA
     Indication: PARKINSON^S DISEASE
     Route: 050
     Dates: start: 20190429, end: 20200914
  2. DUODOPA [Suspect]
     Active Substance: CARBIDOPA\LEVODOPA
     Dosage: INCREASING CONTINUOUS DOSE BY 0.1 ML
     Route: 050
     Dates: start: 20200914, end: 20201126

REACTIONS (15)
  - Weight decreased [Not Recovered/Not Resolved]
  - Myalgia [Not Recovered/Not Resolved]
  - Feeling abnormal [Unknown]
  - Pain [Not Recovered/Not Resolved]
  - Malaise [Not Recovered/Not Resolved]
  - Movement disorder [Not Recovered/Not Resolved]
  - Dyskinesia [Recovered/Resolved]
  - Medical device discomfort [Unknown]
  - Muscle rigidity [Recovered/Resolved]
  - Muscle rigidity [Recovered/Resolved with Sequelae]
  - Freezing phenomenon [Recovered/Resolved]
  - Therapeutic product effect incomplete [Unknown]
  - Dyskinesia [Recovered/Resolved with Sequelae]
  - Musculoskeletal stiffness [Unknown]
  - Gait disturbance [Recovered/Resolved]

NARRATIVE: CASE EVENT DATE: 2020
